FAERS Safety Report 23573493 (Version 1)
Quarter: 2024Q1

REPORT INFORMATION
  Report Type: Spontaneous
  Country: US (occurrence: US)
  Receive Date: 20240228
  Receipt Date: 20240228
  Transmission Date: 20240410
  Serious: No
  Sender: FDA-Public Use
  Company Number: US-002147023-NVSC2024US041733

PATIENT
  Sex: Male

DRUGS (2)
  1. MEKINIST [Suspect]
     Active Substance: TRAMETINIB DIMETHYL SULFOXIDE
     Indication: Salivary gland cancer
     Dosage: 75 MG, BID
     Route: 048
     Dates: start: 202304
  2. TAFINLAR [Suspect]
     Active Substance: DABRAFENIB MESYLATE
     Indication: Salivary gland cancer
     Dosage: 2 MG (DAILY)
     Route: 048
     Dates: start: 202303

REACTIONS (3)
  - Red blood cell count decreased [Unknown]
  - Constipation [Unknown]
  - Myalgia [Unknown]
